FAERS Safety Report 25937680 (Version 2)
Quarter: 2025Q4

REPORT INFORMATION
  Report Type: Report from Study
  Country: EU (occurrence: EU)
  Receive Date: 20251018
  Receipt Date: 20251118
  Transmission Date: 20260118
  Serious: Yes (Other)
  Sender: ABBVIE
  Company Number: EU-ABBVIE-6120405

PATIENT
  Age: 77 Year
  Sex: Male

DRUGS (4)
  1. FOSCARBIDOPA\FOSLEVODOPA [Suspect]
     Active Substance: FOSCARBIDOPA\FOSLEVODOPA
     Indication: Parkinson^s disease
     Dosage: DOSAGE: CRN: 0,30 ML/H, CR: 0,36 ML/H, CRH: 0,54 ML/H, ED: 0,20 ML
     Route: 058
     Dates: start: 20240619
  2. FOSCARBIDOPA\FOSLEVODOPA [Suspect]
     Active Substance: FOSCARBIDOPA\FOSLEVODOPA
     Dosage: DOSAGE: CRN: 0,32 ML/H, SAMPLE CR: 0,36 ML/H, CRH: 0,41 ML/H, ED: 0,2 ML,
     Route: 058
  3. FOSCARBIDOPA\FOSLEVODOPA [Suspect]
     Active Substance: FOSCARBIDOPA\FOSLEVODOPA
     Dosage: SD: 0.2 ML, CRN: 0.32 ML/H, CR:0.36 ML/H, CRH: 0.41 ML/H, ED: 0.1 ML
     Route: 058
  4. FOSCARBIDOPA\FOSLEVODOPA [Suspect]
     Active Substance: FOSCARBIDOPA\FOSLEVODOPA
     Dosage: SD: 0.2 ML, CRN: 0.32 ML/H, CR:0.36 ML/H, CRH: 0.41 ML/H, ED: 0.20 ML.
     Route: 058

REACTIONS (12)
  - Unresponsive to stimuli [Not Recovered/Not Resolved]
  - Hyperkinesia [Not Recovered/Not Resolved]
  - Infusion site erythema [Not Recovered/Not Resolved]
  - Dyskinesia [Unknown]
  - Infusion site induration [Not Recovered/Not Resolved]
  - Infusion site inflammation [Not Recovered/Not Resolved]
  - Device information output issue [Unknown]
  - Emotional distress [Unknown]
  - Hypokinesia [Not Recovered/Not Resolved]
  - Infusion site bruising [Not Recovered/Not Resolved]
  - Device delivery system issue [Unknown]
  - Restlessness [Unknown]

NARRATIVE: CASE EVENT DATE: 20251001
